FAERS Safety Report 17298547 (Version 1)
Quarter: 2020Q1

REPORT INFORMATION
  Report Type: Spontaneous
  Country: GB (occurrence: GB)
  Receive Date: 20200122
  Receipt Date: 20200122
  Transmission Date: 20200409
  Serious: Yes (Other)
  Sender: FDA-Public Use
  Company Number: GB-TEVA-2020-GB-1170809

PATIENT
  Age: 26 Year
  Sex: Male
  Weight: 77 kg

DRUGS (8)
  1. CAPASAL [Concomitant]
     Dosage: USE DAILY FOR 2 WEEKS THEN 2-3 TIMES A WEEK
     Dates: start: 20190611
  2. DOVOBET [Concomitant]
     Active Substance: BETAMETHASONE\CALCIPOTRIENE
     Dosage: APPLY TO SCALP LEAVE ON THEN WASH OFF WITH CAPASAL
     Dates: start: 20190611
  3. BETTAMOUSSE [Concomitant]
     Dosage: APPLY ONCE OR TWICE DAILY
     Dates: start: 20190611
  4. PREDNISOLONE. [Suspect]
     Active Substance: PREDNISOLONE
     Dosage: EVERY MORNING FOR 7 DAYS
     Route: 065
     Dates: start: 20191211
  5. LOCOID [Concomitant]
     Active Substance: HYDROCORTISONE BUTYRATE
     Dosage: APPLY TWICE DAILY FOR ONE WEEK THEN ONCE A DAY
     Dates: start: 20190611
  6. DERMOL [Concomitant]
     Active Substance: BENZALKONIUM CHLORIDE\CHLORHEXIDINE HYDROCHLORIDE\ISOPROPYL MYRISTATE\PARAFFIN
     Dosage: APPLY LIBERALLY FOR DRY SKIN ( AVOID UNLESS INF...
     Dates: start: 20190611
  7. SEBCO [Concomitant]
     Dosage: USE AS DIRECTED
     Dates: start: 20190611
  8. QUETIAPINE. [Concomitant]
     Active Substance: QUETIAPINE
     Dosage: 1 AT NIGHT AFTER GRADUAL INCREASE AS PER SPECIA
     Dates: start: 20190611

REACTIONS (2)
  - Mania [Recovered/Resolved]
  - Suicidal ideation [Unknown]

NARRATIVE: CASE EVENT DATE: 20191224
